FAERS Safety Report 9290107 (Version 2)
Quarter: 2013Q2

REPORT INFORMATION
  Report Type: Report from Study
  Country: BR (occurrence: BR)
  Receive Date: 20130515
  Receipt Date: 20130611
  Transmission Date: 20140414
  Serious: Yes (Other)
  Sender: FDA-Public Use
  Company Number: PHHY2013BR047527

PATIENT
  Sex: Female
  Weight: 64 kg

DRUGS (4)
  1. ACLASTA [Suspect]
     Indication: OSTEOPOROSIS
     Dosage: 5 MG/100 ML
     Route: 042
  2. OSTEONUTRI [Concomitant]
     Indication: OSTEOPOROSIS
     Dosage: 1 TABLET PER DAY
     Route: 048
  3. CALCIUM D3                         /00944201/ [Concomitant]
     Dosage: UNK
  4. CHONDROITIN SULFATE W/GLUCOSAMINE [Concomitant]

REACTIONS (2)
  - Pneumonia [Recovered/Resolved]
  - Influenza like illness [Recovered/Resolved]
